FAERS Safety Report 9440506 (Version 1)
Quarter: 2013Q3

REPORT INFORMATION
  Report Type: Spontaneous
  Country: IL (occurrence: IL)
  Receive Date: 20130805
  Receipt Date: 20130805
  Transmission Date: 20140515
  Serious: Yes (Hospitalization)
  Sender: FDA-Public Use
  Company Number: IL-MYLANLABS-2013S1016528

PATIENT
  Age: 7 Year
  Sex: Female

DRUGS (4)
  1. VALPROIC ACID [Suspect]
     Indication: EPILEPSY
     Dosage: CONCENTRATION OF 250MG/5ML, THEN CHANGED TO A CONCENTRATION OF 200 MG/L
     Route: 065
  2. VALPROIC ACID [Suspect]
     Indication: EPILEPSY
     Dosage: CONCENTRATION OF 200 MG/L
     Route: 065
  3. SULTIAME [Concomitant]
     Indication: EPILEPSY
     Route: 065
  4. CLONAZEPAM [Concomitant]
     Indication: EPILEPSY
     Route: 065

REACTIONS (9)
  - Toxicity to various agents [Recovering/Resolving]
  - Overdose [Recovering/Resolving]
  - Incorrect dose administered [Unknown]
  - Respiratory depression [Recovering/Resolving]
  - Thrombocytopenia [Recovered/Resolved]
  - Feeding disorder [Unknown]
  - Somnolence [Recovering/Resolving]
  - Venous pressure jugular increased [Unknown]
  - Oedema peripheral [Unknown]
